FAERS Safety Report 9797864 (Version 1)
Quarter: 2014Q1

REPORT INFORMATION
  Report Type: Spontaneous
  Country: US (occurrence: US)
  Receive Date: 20140106
  Receipt Date: 20140106
  Transmission Date: 20141002
  Serious: Yes (Other)
  Sender: FDA-Public Use
  Company Number: US-BAYER-2014-001620

PATIENT
  Age: 16 Year
  Sex: Female
  Weight: 113.38 kg

DRUGS (2)
  1. YAZ [Suspect]
  2. METFORMIN [Concomitant]
     Indication: POLYCYSTIC OVARIES

REACTIONS (1)
  - Cholecystectomy [None]
